FAERS Safety Report 17331271 (Version 1)
Quarter: 2020Q1

REPORT INFORMATION
  Report Type: Spontaneous
  Country: US (occurrence: US)
  Receive Date: 20200128
  Receipt Date: 20200128
  Transmission Date: 20200409
  Serious: Yes (Other)
  Sender: FDA-Public Use
  Company Number: US-GILEAD-2020-0448450

PATIENT
  Age: 80 Year
  Sex: Female
  Weight: 80.1 kg

DRUGS (1)
  1. YESCARTA [Suspect]
     Active Substance: AXICABTAGENE CILOLEUCEL
     Indication: DIFFUSE LARGE B-CELL LYMPHOMA
     Dosage: UNK, ONCE
     Route: 042
     Dates: start: 20190318, end: 20190318

REACTIONS (2)
  - Nervous system disorder [Unknown]
  - Aphasia [Unknown]

NARRATIVE: CASE EVENT DATE: 20190319
